FAERS Safety Report 4665876-1 (Version None)
Quarter: 2005Q2

REPORT INFORMATION
  Report Type: 
  Country: None (occurrence: None)
  Receive Date: 20050517
  Receipt Date: 20050427
  Transmission Date: 20051028
  Serious: Yes (Hospitalization, Other)
  Sender: FDA-Public Use
  Company Number: USA050496774

PATIENT
  Sex: Male

DRUGS (2)
  1. HUMULIN N [Suspect]
  2. HUMULIN R [Suspect]

REACTIONS (5)
  - BLOOD GLUCOSE INCREASED [None]
  - KETOACIDOSIS [None]
  - LIVER ABSCESS [None]
  - LOSS OF CONSCIOUSNESS [None]
  - PNEUMONIA [None]
